FAERS Safety Report 10866163 (Version 1)
Quarter: 2015Q1

REPORT INFORMATION
  Report Type: Spontaneous
  Country: IT (occurrence: None)
  Receive Date: 20150220
  Receipt Date: 20150220
  Transmission Date: 20150721
  Serious: Yes (Hospitalization, Other)
  Sender: FDA-Public Use
  Company Number: IT2015GSK022584

PATIENT
  Age: 40 Year
  Sex: Female

DRUGS (4)
  1. ATAZANAVIR (ATAZANAVIR) [Suspect]
     Active Substance: ATAZANAVIR
     Indication: HIV INFECTION
  2. RITONVAVIR [Suspect]
     Active Substance: RITONAVIR
     Indication: HIV INFECTION
  3. TENOFOVIR (TENOFOVIR) UNKNOWN [Suspect]
     Active Substance: TENOFOVIR
     Indication: HIV INFECTION
  4. LAMIVUDINE (LAMIVUDINE) UNKNOWN [Suspect]
     Active Substance: LAMIVUDINE
     Indication: HIV INFECTION

REACTIONS (12)
  - Femur fracture [None]
  - Weight decreased [None]
  - Pubis fracture [None]
  - Arthralgia [None]
  - Road traffic accident [None]
  - Typhoid fever [None]
  - Clostridium difficile colitis [None]
  - Hyperpyrexia [None]
  - Osteolysis [None]
  - Rash [None]
  - Tremor [None]
  - Diarrhoea [None]
